FAERS Safety Report 23861266 (Version 1)
Quarter: 2024Q2

REPORT INFORMATION
  Report Type: Spontaneous
  Country: JP (occurrence: JP)
  Receive Date: 20240516
  Receipt Date: 20240516
  Transmission Date: 20240716
  Serious: Yes (Other)
  Sender: FDA-Public Use
  Company Number: JP-Accord-424149

PATIENT
  Age: 49 Year
  Sex: Male

DRUGS (2)
  1. CARBOPLATIN [Suspect]
     Active Substance: CARBOPLATIN
     Indication: Adenoid cystic carcinoma
     Dosage: TOTAL OF SIX WEEKLY-COURSES (AREA UNDER THE CURVE 2)
  2. PACLITAXEL [Suspect]
     Active Substance: PACLITAXEL
     Indication: Adenoid cystic carcinoma
     Dosage: 40 MG/M2 ON DAYS 1, 8, 15, 22, 29, AND 36

REACTIONS (1)
  - Oesophagitis [Unknown]
